FAERS Safety Report 10888103 (Version 1)
Quarter: 2015Q1

REPORT INFORMATION
  Report Type: Spontaneous
  Country: US (occurrence: US)
  Receive Date: 20150304
  Receipt Date: 20150304
  Transmission Date: 20150721
  Serious: No
  Sender: FDA-Public Use
  Company Number: US-AMGEN-USASP2014028293

PATIENT
  Age: 53 Year
  Sex: Female
  Weight: 85.71 kg

DRUGS (2)
  1. ENBREL [Suspect]
     Active Substance: ETANERCEPT
     Indication: RHEUMATOID ARTHRITIS
     Dosage: 50 MG, QWK
     Route: 058
     Dates: start: 20140212, end: 20140327
  2. HUMIRA [Concomitant]
     Active Substance: ADALIMUMAB
     Dosage: UNK

REACTIONS (9)
  - Swelling [Unknown]
  - Oedema peripheral [Unknown]
  - Injection site swelling [Unknown]
  - Injection site pruritus [Recovered/Resolved]
  - Urticaria [Recovered/Resolved]
  - Pain [Recovered/Resolved]
  - Injection site hypersensitivity [Recovered/Resolved]
  - Injection site urticaria [Recovered/Resolved]
  - Injection site pain [Recovered/Resolved]

NARRATIVE: CASE EVENT DATE: 201402
